FAERS Safety Report 6661482-8 (Version None)
Quarter: 2010Q1

REPORT INFORMATION
  Report Type: 
  Country: None (occurrence: None)
  Receive Date: 20100331
  Receipt Date: 20100321
  Transmission Date: 20100710
  Serious: Yes (Other)
  Sender: FDA-Public Use
  Company Number: US-PFIZER INC-2010036753

PATIENT
  Sex: Male
  Weight: 79.4 kg

DRUGS (10)
  1. XALATAN [Suspect]
     Indication: GLAUCOMA
     Dosage: UNK
     Route: 047
     Dates: start: 20080101
  2. HYDROCHLOROTHIAZIDE [Concomitant]
     Dosage: UNK
  3. AMPHETAMINE SULFATE [Concomitant]
     Dosage: UNK
  4. AMBIEN [Concomitant]
     Dosage: UNK
  5. NAMENDA [Concomitant]
     Dosage: UNK
  6. AVODART [Concomitant]
     Dosage: UNK
  7. ARICEPT [Concomitant]
     Dosage: UNK
  8. TESTOSTERONE [Concomitant]
     Dosage: UNK
  9. CLONAZEPAM [Concomitant]
     Dosage: UNK
  10. LIPITOR [Concomitant]
     Dosage: UNK

REACTIONS (4)
  - BLOOD GLUCOSE INCREASED [None]
  - EYE INFECTION [None]
  - GROWTH OF EYELASHES [None]
  - HAIR GROWTH ABNORMAL [None]
